FAERS Safety Report 21851057 (Version 1)
Quarter: 2023Q1

REPORT INFORMATION
  Report Type: Report from Study
  Country: US (occurrence: US)
  Receive Date: 20230111
  Receipt Date: 20230111
  Transmission Date: 20230418
  Serious: Yes (Other)
  Sender: FDA-Public Use
  Company Number: US-JNJFOC-20230104788

PATIENT
  Age: 6 Decade
  Sex: Male

DRUGS (2)
  1. SPRAVATO [Suspect]
     Active Substance: ESKETAMINE
     Indication: Depression
     Dosage: 56 MG, 7 DOSES
     Dates: start: 20191111, end: 20191205
  2. SPRAVATO [Suspect]
     Active Substance: ESKETAMINE
     Dosage: 84 MG, 82 DOSES
     Dates: start: 20191210, end: 20230105

REACTIONS (5)
  - Cerebrovascular accident [Unknown]
  - Seizure [Unknown]
  - Bipolar disorder [Unknown]
  - Vascular graft [Unknown]
  - Anxiety [Unknown]
